FAERS Safety Report 9719856 (Version 5)
Quarter: 2014Q2

REPORT INFORMATION
  Report Type: Spontaneous
  Country: CA (occurrence: CA)
  Receive Date: 20131128
  Receipt Date: 20140515
  Transmission Date: 20141212
  Serious: Yes (Hospitalization, Other)
  Sender: FDA-Public Use
  Company Number: CA-SA-2013SA114800

PATIENT
  Age: 49 Year
  Sex: Female

DRUGS (12)
  1. FERRLECIT [Suspect]
     Indication: IRON DEFICIENCY ANAEMIA
     Dosage: INFUSION
     Route: 042
     Dates: start: 20131105
  2. FERRLECIT [Suspect]
     Indication: IRON DEFICIENCY ANAEMIA
     Route: 042
     Dates: start: 201305, end: 201306
  3. FERRLECIT [Suspect]
     Indication: IRON DEFICIENCY ANAEMIA
     Route: 042
     Dates: start: 20130909
  4. FERRLECIT [Suspect]
     Indication: IRON DEFICIENCY ANAEMIA
     Route: 042
     Dates: start: 20131008
  5. LANTUS [Concomitant]
     Indication: TYPE 1 DIABETES MELLITUS
     Route: 058
  6. RAMIPRIL [Concomitant]
     Route: 048
  7. ASA [Concomitant]
     Route: 048
  8. HUMALOG [Concomitant]
     Indication: TYPE 1 DIABETES MELLITUS
     Route: 058
  9. CYKLOKAPRON [Concomitant]
     Dosage: STRENGTH: 500 MG
  10. IMODIUM [Concomitant]
  11. MALARONE [Concomitant]
  12. ALL OTHER THERAPEUTIC PRODUCTS [Concomitant]

REACTIONS (13)
  - Hypothermia [Recovered/Resolved]
  - Syncope [Recovered/Resolved]
  - Malaise [Recovered/Resolved]
  - Swelling [Recovered/Resolved]
  - Malaise [Recovered/Resolved]
  - Oedema [Recovered/Resolved]
  - Chest pain [Recovered/Resolved]
  - Dyspnoea [Recovered/Resolved]
  - Blood pressure decreased [Recovered/Resolved]
  - Oedema peripheral [Recovered/Resolved]
  - Abdominal pain [Unknown]
  - Pallor [Unknown]
  - Radial pulse abnormal [Unknown]
